FAERS Safety Report 7821853-0 (Version None)
Quarter: 2011Q4

REPORT INFORMATION
  Report Type: 
  Country: None (occurrence: None)
  Receive Date: 20111018
  Receipt Date: 20100921
  Transmission Date: 20120403
  Serious: No
  Sender: FDA-Public Use
  Company Number: US-ASTRAZENECA-2010SE44527

PATIENT
  Age: 60 Year
  Sex: Female

DRUGS (5)
  1. KLONOPIN [Concomitant]
  2. SYMBICORT [Suspect]
     Dosage: 160/4.5 UG  TWO PUFFS DAILY
     Route: 055
  3. ZOLOFT [Concomitant]
  4. SYMBICORT [Suspect]
     Indication: SLEEP APNOEA SYNDROME
     Dosage: 160/4.5 UG  TWO PUFFS TWICE A DAY
     Route: 055
     Dates: start: 20100906
  5. WELLBUTRIN [Concomitant]

REACTIONS (3)
  - DYSGEUSIA [None]
  - INCORRECT DOSE ADMINISTERED [None]
  - DRUG DOSE OMISSION [None]
